FAERS Safety Report 9411154 (Version 1)
Quarter: 2013Q3

REPORT INFORMATION
  Report Type: Spontaneous
  Country: AU (occurrence: AU)
  Receive Date: 20130721
  Receipt Date: 20130721
  Transmission Date: 20140515
  Serious: Yes (Other)
  Sender: FDA-Public Use
  Company Number: PHHY2013AU076758

PATIENT
  Sex: Male

DRUGS (1)
  1. ZOLEDRONATE [Suspect]

REACTIONS (1)
  - Osteonecrosis of jaw [Unknown]
